FAERS Safety Report 6803229-8 (Version None)
Quarter: 2010Q2

REPORT INFORMATION
  Report Type: 
  Country: None (occurrence: None)
  Receive Date: 20100628
  Receipt Date: 20100622
  Transmission Date: 20101027
  Serious: Yes (Hospitalization)
  Sender: FDA-Public Use
  Company Number: B0661817A

PATIENT
  Age: 29 Year
  Sex: Female

DRUGS (3)
  1. AUGMENTIN '125' [Suspect]
     Indication: UTERINE INFECTION
     Dosage: 1G SINGLE DOSE
     Route: 048
     Dates: start: 20090901, end: 20090901
  2. OFLOXACIN [Concomitant]
     Indication: UTERINE INFECTION
     Dosage: 200MG SINGLE DOSE
     Route: 048
     Dates: start: 20090901, end: 20090901
  3. KETUM [Concomitant]
     Indication: UTERINE INFECTION
     Dosage: 100MG SINGLE DOSE
     Route: 048
     Dates: start: 20090901, end: 20090901

REACTIONS (6)
  - ABDOMINAL PAIN UPPER [None]
  - DYSPNOEA [None]
  - ERYTHEMA [None]
  - FACE OEDEMA [None]
  - PRURITUS [None]
  - VOMITING [None]
